FAERS Safety Report 7959434-0 (Version None)
Quarter: 2011Q4

REPORT INFORMATION
  Report Type: 
  Country: None (occurrence: None)
  Receive Date: 20111206
  Receipt Date: 20111202
  Transmission Date: 20120403
  Serious: No
  Sender: FDA-Public Use
  Company Number: US-PFIZER INC-2011295136

PATIENT
  Sex: Female
  Weight: 56.7 kg

DRUGS (2)
  1. MULTI-VITAMINS [Concomitant]
     Dosage: UNK
  2. DEPO-PROVERA [Suspect]
     Indication: CONTRACEPTION
     Dosage: 150 MG, EVERY 3 MONTHS

REACTIONS (2)
  - ABDOMINAL PAIN [None]
  - INAPPROPRIATE SCHEDULE OF DRUG ADMINISTRATION [None]
